FAERS Safety Report 6574145-4 (Version None)
Quarter: 2010Q1

REPORT INFORMATION
  Report Type: 
  Country: None (occurrence: None)
  Receive Date: 20100208
  Receipt Date: 20100125
  Transmission Date: 20100710
  Serious: Yes (Hospitalization, Other)
  Sender: FDA-Public Use
  Company Number: GB-ROCHE-681161

PATIENT
  Sex: Male

DRUGS (1)
  1. PEG-INTERFERON A-2A (RO 25-8310) [Suspect]
     Indication: HEPATITIS C
     Route: 065
     Dates: start: 20091101

REACTIONS (5)
  - DECREASED APPETITE [None]
  - HAEMOPTYSIS [None]
  - LOWER RESPIRATORY TRACT INFECTION [None]
  - SYNCOPE [None]
  - VOMITING [None]
